FAERS Safety Report 11750596 (Version 1)
Quarter: 2015Q4

REPORT INFORMATION
  Report Type: Spontaneous
  Country: US (occurrence: None)
  Receive Date: 20151117
  Receipt Date: 20151117
  Transmission Date: 20160304
  Serious: Yes (Hospitalization, Other)
  Sender: FDA-Public Use
  Company Number: None

PATIENT
  Age: 85 Year
  Sex: Male
  Weight: 83.01 kg

DRUGS (2)
  1. LEVOFLOXACIN. [Suspect]
     Active Substance: LEVOFLOXACIN
     Indication: PNEUMONIA
     Route: 042
     Dates: start: 20151107, end: 20151109
  2. VANCOMYCIN [Suspect]
     Active Substance: VANCOMYCIN
     Indication: PNEUMONIA
     Route: 042
     Dates: start: 20151107, end: 20151109

REACTIONS (8)
  - Pyrexia [None]
  - Blister [None]
  - Stevens-Johnson syndrome [None]
  - Rash [None]
  - Red man syndrome [None]
  - Skin disorder [None]
  - Erythema [None]
  - Urine output decreased [None]

NARRATIVE: CASE EVENT DATE: 20151110
